FAERS Safety Report 8304812-3 (Version None)
Quarter: 2012Q2

REPORT INFORMATION
  Report Type: 
  Country: None (occurrence: None)
  Receive Date: 20120423
  Receipt Date: 20120409
  Transmission Date: 20120825
  Serious: Yes (Hospitalization, Other)
  Sender: FDA-Public Use
  Company Number: GB-RANBAXY-2012RR-55566

PATIENT
  Age: 63 Year
  Sex: Male

DRUGS (9)
  1. LANSOPRAZOLE [Suspect]
     Indication: BARRETT'S OESOPHAGUS
     Dosage: 30 MG
     Route: 065
  2. LANSOPRAZOLE [Suspect]
     Dosage: 30 MG
     Route: 065
  3. LANSOPRAZOLE [Suspect]
     Dosage: 15 MG/DAY
     Route: 065
  4. OMEPRAZOLE [Suspect]
     Indication: OESOPHAGITIS
     Dosage: 20 MG TWICE DAILY
     Route: 065
  5. RANITIDINE [Suspect]
     Indication: OESOPHAGITIS
     Dosage: UNK
     Route: 065
  6. OMEPRAZOLE [Suspect]
     Indication: DUODENITIS
  7. RANITIDINE [Suspect]
     Indication: DUODENITIS
  8. OMEPRAZOLE [Suspect]
     Dosage: 20 MG TWICE DAILY
     Route: 065
  9. OMEPRAZOLE [Suspect]

REACTIONS (5)
  - CONVULSION [None]
  - VOMITING [None]
  - LETHARGY [None]
  - HYPOMAGNESAEMIA [None]
  - DIARRHOEA [None]
